FAERS Safety Report 23286958 (Version 2)
Quarter: 2023Q4

REPORT INFORMATION
  Report Type: Spontaneous
  Country: JP (occurrence: JP)
  Receive Date: 20231212
  Receipt Date: 20231221
  Transmission Date: 20240110
  Serious: Yes (Other)
  Sender: FDA-Public Use
  Company Number: JP-BAXTER-2023BAX037625

PATIENT
  Age: 8 Decade
  Sex: Male

DRUGS (4)
  1. DOXIL [Suspect]
     Active Substance: DOXORUBICIN HYDROCHLORIDE
     Indication: Kaposi^s sarcoma AIDS related
     Dosage: FIVE COURSES OF LIPOSOMAL DOXORUBICIN (PLD)
     Route: 065
  2. DOXIL [Suspect]
     Active Substance: DOXORUBICIN HYDROCHLORIDE
     Dosage: SEVEN ADDITIONAL COURSES OF PLD
     Route: 065
  3. DOXIL [Suspect]
     Active Substance: DOXORUBICIN HYDROCHLORIDE
     Dosage: ADDITIONAL ADMINISTRATION OF PLD WAS RESUMED
     Route: 065
  4. DOXIL [Suspect]
     Active Substance: DOXORUBICIN HYDROCHLORIDE
     Dosage: PLD THERAPY WAS COMPLETED IN A TOTAL OF 29 COURSE
     Route: 065

REACTIONS (2)
  - Cardiomyopathy [Unknown]
  - Cardiac contractility decreased [Unknown]
